FAERS Safety Report 5596028-9 (Version None)
Quarter: 2008Q1

REPORT INFORMATION
  Report Type: 
  Country: None (occurrence: None)
  Receive Date: 20080118
  Receipt Date: 20080107
  Transmission Date: 20080703
  Serious: Yes (Death, Hospitalization)
  Sender: FDA-Public Use
  Company Number: FR-ROCHE-540149

PATIENT
  Age: 74 Year
  Sex: Male

DRUGS (2)
  1. CAPECITABINE [Suspect]
     Dosage: AS PER PROTOCOL:3600MG GIVE DAILY ON DAY 1-14 EVERY 3 WEEKS
     Route: 048
     Dates: start: 20040318, end: 20040330
  2. OXALIPLATINE [Suspect]
     Route: 042
     Dates: start: 20040319, end: 20040319

REACTIONS (2)
  - DIARRHOEA [None]
  - MYOCARDIAL INFARCTION [None]
